FAERS Safety Report 9191667 (Version 2)
Quarter: 2013Q2

REPORT INFORMATION
  Report Type: Spontaneous
  Country: JP (occurrence: JP)
  Receive Date: 20130326
  Receipt Date: 20130614
  Transmission Date: 20140414
  Serious: Yes (Other)
  Sender: FDA-Public Use
  Company Number: JP-B.I. PHARMACEUTICALS,INC./RIDGEFIELD-2013-BI-07245NB

PATIENT
  Age: 73 Year
  Sex: Male

DRUGS (11)
  1. PRADAXA [Suspect]
     Indication: PROPHYLAXIS
     Dosage: 220 MG
     Route: 048
     Dates: start: 20130125
  2. BAYASPIRIN [Suspect]
     Dosage: 100 MG
     Route: 065
  3. PLAVIX [Suspect]
     Dosage: 75 MG
     Route: 065
  4. LUPRAC [Concomitant]
     Dosage: 4 MG
     Route: 065
  5. MAINTATE [Concomitant]
     Dosage: 1.25 MG
     Route: 065
  6. TAKEPRON [Concomitant]
     Dosage: 15 MG
     Route: 065
  7. RENIVACE [Concomitant]
     Dosage: 2.5 MG
     Route: 065
  8. CRESTOR [Concomitant]
     Dosage: 5 MG
     Route: 065
  9. SIGMART [Concomitant]
     Dosage: 15 MG
     Route: 065
  10. KAMAG G [Concomitant]
     Dosage: 1.5 MG
     Route: 065
  11. SIGMART [Concomitant]
     Dosage: 50 MG
     Route: 065

REACTIONS (1)
  - Cerebral infarction [Not Recovered/Not Resolved]
